FAERS Safety Report 18115938 (Version 1)
Quarter: 2020Q3

REPORT INFORMATION
  Report Type: Spontaneous
  Country: DE (occurrence: DE)
  Receive Date: 20200805
  Receipt Date: 20200805
  Transmission Date: 20201103
  Serious: Yes (Disabling, Other)
  Sender: FDA-Public Use
  Company Number: DE-SAMSUNG BIOEPIS-SB-2020-24017

PATIENT
  Age: 74 Year
  Sex: Female
  Weight: 50 kg

DRUGS (2)
  1. ETANERCEPT [Suspect]
     Active Substance: ETANERCEPT
     Indication: SYSTEMIC SCLERODERMA
  2. ETANERCEPT [Suspect]
     Active Substance: ETANERCEPT
     Indication: PULMONARY FIBROSIS
     Route: 058
     Dates: start: 2005

REACTIONS (3)
  - Metastases to central nervous system [Recovered/Resolved with Sequelae]
  - Bronchial carcinoma [Recovered/Resolved with Sequelae]
  - Product use in unapproved indication [Unknown]

NARRATIVE: CASE EVENT DATE: 202003
